FAERS Safety Report 6615924-4 (Version None)
Quarter: 2010Q1

REPORT INFORMATION
  Report Type: 
  Country: None (occurrence: None)
  Receive Date: 20100305
  Receipt Date: 20100224
  Transmission Date: 20100710
  Serious: Yes (Disabling)
  Sender: FDA-Public Use
  Company Number: GXKR2010HR02299

PATIENT
  Age: 80 Year
  Sex: Female

DRUGS (1)
  1. XORIMAX (NGX) [Suspect]
     Indication: PNEUMONIA
     Dosage: 500 MG, BID
     Route: 048
     Dates: start: 20100212, end: 20100222

REACTIONS (1)
  - HEARING IMPAIRED [None]
